FAERS Safety Report 6450171-0 (Version None)
Quarter: 2009Q4

REPORT INFORMATION
  Report Type: 
  Country: None (occurrence: None)
  Receive Date: 20091123
  Receipt Date: 20091112
  Transmission Date: 20100525
  Serious: Yes (Death, Other)
  Sender: FDA-Public Use
  Company Number: AR-ROCHE-665239

PATIENT
  Sex: Female

DRUGS (1)
  1. CAPECITABINE [Suspect]
     Indication: BREAST CANCER
     Dosage: FREQUENCY: DAILY
     Route: 048
     Dates: start: 20090812, end: 20091015

REACTIONS (2)
  - INTESTINAL PERFORATION [None]
  - PERITONITIS [None]
